FAERS Safety Report 19766420 (Version 3)
Quarter: 2021Q4

REPORT INFORMATION
  Report Type: Spontaneous
  Country: JP (occurrence: JP)
  Receive Date: 20210830
  Receipt Date: 20211018
  Transmission Date: 20220304
  Serious: Yes (Hospitalization)
  Sender: FDA-Public Use
  Company Number: JP-ELI_LILLY_AND_COMPANY-JP202108009513

PATIENT
  Age: 64 Year
  Sex: Female
  Weight: 49 kg

DRUGS (6)
  1. VERZENIO [Suspect]
     Active Substance: ABEMACICLIB
     Indication: Breast cancer recurrent
     Dosage: 150 MG, BID
     Route: 048
     Dates: start: 20210806, end: 20210818
  2. ACETAMINOPHEN [Suspect]
     Active Substance: ACETAMINOPHEN
     Indication: Pain
     Dosage: 200 MG, TID
     Dates: start: 20210806, end: 20210818
  3. FASLODEX [Concomitant]
     Active Substance: FULVESTRANT
     Indication: Breast cancer recurrent
     Dosage: UNK, UNKNOWN
     Dates: start: 20210806
  4. MIYA-BM [Concomitant]
     Active Substance: CLOSTRIDIUM BUTYRICUM SPORES STRAIN M-55
     Indication: Diarrhoea
     Dosage: 6 DOSAGE FORM, DAILY
     Route: 048
     Dates: start: 20210806, end: 20210818
  5. LOPERAMIDE [Concomitant]
     Active Substance: LOPERAMIDE
     Indication: Diarrhoea
     Dosage: 1 DOSAGE FORM, PRN
     Dates: start: 20210806, end: 20210818
  6. PROCHLORPERAZINE MALEATE [Concomitant]
     Active Substance: PROCHLORPERAZINE MALEATE
     Indication: Nausea
     Dosage: 5 MG, PRN
     Dates: start: 20210806, end: 20210818

REACTIONS (3)
  - Erythema [Recovered/Resolved]
  - Pyrexia [Unknown]
  - Decreased appetite [Unknown]

NARRATIVE: CASE EVENT DATE: 20210817
